FAERS Safety Report 4861796-8 (Version None)
Quarter: 2005Q4

REPORT INFORMATION
  Report Type: 
  Country: None (occurrence: None)
  Receive Date: 20051129
  Receipt Date: 20050715
  Transmission Date: 20060501
  Serious: Yes (Hospitalization)
  Sender: FDA-Public Use
  Company Number: CHPA2005US01965

PATIENT
  Age: 56 Year
  Sex: Male
  Weight: 102 kg

DRUGS (2)
  1. NICOTINE [Suspect]
     Indication: SMOKING CESSATION THERAPY
     Dosage: 21 MG, QD, TRANSDERMAL
     Route: 062
     Dates: end: 20050712
  2. VYTORIN [Concomitant]

REACTIONS (7)
  - ANXIETY [None]
  - APPLICATION SITE PAIN [None]
  - CONFUSIONAL STATE [None]
  - HEADACHE [None]
  - INSOMNIA [None]
  - NAUSEA [None]
  - NECK PAIN [None]
